FAERS Safety Report 16975587 (Version 6)
Quarter: 2023Q2

REPORT INFORMATION
  Report Type: Spontaneous
  Country: US (occurrence: US)
  Receive Date: 20191030
  Receipt Date: 20230626
  Transmission Date: 20230721
  Serious: Yes (Other)
  Sender: FDA-Public Use
  Company Number: US-GILEAD-2019-0434735

PATIENT
  Age: 43 Year
  Sex: Male
  Weight: 114.74 kg

DRUGS (27)
  1. VIREAD [Suspect]
     Active Substance: TENOFOVIR DISOPROXIL FUMARATE
     Indication: HIV infection
     Dosage: UNK
     Route: 048
     Dates: start: 2003, end: 200412
  2. TRUVADA [Suspect]
     Active Substance: EMTRICITABINE\TENOFOVIR DISOPROXIL FUMARATE
     Indication: HIV infection
     Dosage: UNK
     Route: 048
     Dates: start: 2004, end: 2016
  3. TRUVADA [Suspect]
     Active Substance: EMTRICITABINE\TENOFOVIR DISOPROXIL FUMARATE
     Dosage: UNK
     Route: 048
     Dates: start: 20041213, end: 201610
  4. BIKTARVY [Concomitant]
     Active Substance: BICTEGRAVIR SODIUM\EMTRICITABINE\TENOFOVIR ALAFENAMIDE FUMARATE
     Indication: HIV infection
  5. GENVOYA [Concomitant]
     Active Substance: COBICISTAT\ELVITEGRAVIR\EMTRICITABINE\TENOFOVIR ALAFENAMIDE FUMARATE
     Indication: HIV infection
  6. VITAMIN D NOS [Concomitant]
     Active Substance: VITAMIN D NOS
  7. ACETAMINOPHEN [Concomitant]
     Active Substance: ACETAMINOPHEN
  8. ACYCLOVIR [Concomitant]
     Active Substance: ACYCLOVIR
  9. AMOXICILLIN [Concomitant]
     Active Substance: AMOXICILLIN
  10. ASPIRIN [Concomitant]
     Active Substance: ASPIRIN
  11. ESOMEPRAZOLE [Concomitant]
     Active Substance: ESOMEPRAZOLE
  12. FAMOTIDINE [Concomitant]
     Active Substance: FAMOTIDINE
  13. HALOPERIDOL [Concomitant]
     Active Substance: HALOPERIDOL
  14. LANSOPRAZOLE [Concomitant]
     Active Substance: LANSOPRAZOLE
  15. LASIX [Concomitant]
     Active Substance: FUROSEMIDE
  16. LEVOFLOXACIN [Concomitant]
     Active Substance: LEVOFLOXACIN
  17. OMEPRAZOLE [Concomitant]
     Active Substance: OMEPRAZOLE
  18. PANTOPRAZOLE [Concomitant]
     Active Substance: PANTOPRAZOLE
  19. PENICILLIN G [Concomitant]
     Active Substance: PENICILLIN G
  20. PRAVASTATIN [Concomitant]
     Active Substance: PRAVASTATIN
  21. PREDNISONE [Concomitant]
     Active Substance: PREDNISONE
  22. WARFARIN [Concomitant]
     Active Substance: WARFARIN
  23. NORVIR [Concomitant]
     Active Substance: RITONAVIR
  24. PREZISTA [Concomitant]
     Active Substance: DARUNAVIR ETHANOLATE
  25. ZIAGEN [Concomitant]
     Active Substance: ABACAVIR SULFATE
  26. COUMADIN [Concomitant]
     Active Substance: WARFARIN SODIUM
  27. CARVEDILOL [Concomitant]
     Active Substance: CARVEDILOL

REACTIONS (21)
  - Fibula fracture [Not Recovered/Not Resolved]
  - Foot fracture [Not Recovered/Not Resolved]
  - Ankle fracture [Not Recovered/Not Resolved]
  - Acute kidney injury [Not Recovered/Not Resolved]
  - Multiple fractures [Unknown]
  - Renal failure [Unknown]
  - Renal impairment [Not Recovered/Not Resolved]
  - Osteopenia [Not Recovered/Not Resolved]
  - Exostosis [Unknown]
  - Bone density decreased [Not Recovered/Not Resolved]
  - Emotional distress [Not Recovered/Not Resolved]
  - Anhedonia [Not Recovered/Not Resolved]
  - Economic problem [Not Recovered/Not Resolved]
  - Anxiety [Not Recovered/Not Resolved]
  - Pain [Not Recovered/Not Resolved]
  - Intervertebral disc degeneration [Not Recovered/Not Resolved]
  - Spinal disorder [Not Recovered/Not Resolved]
  - Foot fracture [Not Recovered/Not Resolved]
  - Nephropathy [Unknown]
  - Osteoarthritis [Unknown]
  - Loss of personal independence in daily activities [Unknown]

NARRATIVE: CASE EVENT DATE: 20110124
